FAERS Safety Report 9682579 (Version 1)
Quarter: 2013Q4

REPORT INFORMATION
  Report Type: Report from Study
  Country: CA (occurrence: CA)
  Receive Date: 20131112
  Receipt Date: 20131112
  Transmission Date: 20140711
  Serious: Yes (Other)
  Sender: FDA-Public Use
  Company Number: CA-UCBSA-102345

PATIENT
  Age: 58 Year
  Sex: Female

DRUGS (11)
  1. CIMZIA [Suspect]
     Indication: RHEUMATOID ARTHRITIS
     Route: 058
     Dates: start: 2013, end: 2013
  2. CIMZIA [Suspect]
     Indication: RHEUMATOID ARTHRITIS
     Route: 058
     Dates: start: 20130520, end: 2013
  3. CIMZIA [Suspect]
     Indication: RHEUMATOID ARTHRITIS
     Dosage: DOSE: 400 MG Q 2 WEEKS X 3
     Route: 058
     Dates: start: 20130409, end: 20130506
  4. METOPROLOL [Concomitant]
     Indication: ANGINA PECTORIS
     Route: 048
     Dates: start: 20131015
  5. METOPROLOL [Concomitant]
     Indication: HYPERTENSION
     Route: 048
     Dates: start: 20131015
  6. OMEPRAZOLE [Concomitant]
     Indication: GASTROOESOPHAGEAL REFLUX DISEASE
     Route: 048
  7. NAPROXEN [Concomitant]
     Indication: RHEUMATOID ARTHRITIS
     Route: 048
     Dates: start: 20020529
  8. COVERSYL [Concomitant]
     Indication: HYPERTENSION
     Dosage: DOSE: UNKNOWN MG DAILY
     Route: 048
  9. CRESTOR [Concomitant]
     Indication: HYPERLIPIDAEMIA
     Dosage: DOSE: UNKNOWN MG DAILY
     Route: 048
  10. ARAVA [Concomitant]
     Indication: RHEUMATOID ARTHRITIS
     Route: 048
     Dates: start: 201209
  11. PLAQUENIL [Concomitant]
     Indication: RHEUMATOID ARTHRITIS
     Route: 048
     Dates: start: 20020529

REACTIONS (3)
  - Herpes zoster [Not Recovered/Not Resolved]
  - Diarrhoea [Not Recovered/Not Resolved]
  - Inappropriate schedule of drug administration [Unknown]
